FAERS Safety Report 13151293 (Version 1)
Quarter: 2017Q1

REPORT INFORMATION
  Report Type: Report from Study
  Country: US (occurrence: US)
  Receive Date: 20170124
  Receipt Date: 20170124
  Transmission Date: 20170428
  Serious: Yes (Death)
  Sender: FDA-Public Use
  Company Number: US-CONCORDIA PHARMACEUTICALS INC.-GSH201701-000571

PATIENT
  Age: 74 Year
  Sex: Female

DRUGS (9)
  1. AMLODIPINE [Suspect]
     Active Substance: AMLODIPINE BESYLATE
     Route: 048
  2. DIGOXIN. [Suspect]
     Active Substance: DIGOXIN
  3. INSULIN [Suspect]
     Active Substance: INSULIN NOS
     Route: 048
  4. INSULIN [Suspect]
     Active Substance: INSULIN NOS
     Route: 051
  5. AMITRIPTYLINE [Suspect]
     Active Substance: AMITRIPTYLINE
     Route: 048
  6. CHLORPROMAZINE. [Suspect]
     Active Substance: CHLORPROMAZINE
     Route: 048
  7. AMLODIPINE [Suspect]
     Active Substance: AMLODIPINE BESYLATE
     Route: 051
  8. CHLORPROMAZINE. [Suspect]
     Active Substance: CHLORPROMAZINE
     Route: 051
  9. AMITRIPTYLINE [Suspect]
     Active Substance: AMITRIPTYLINE
     Route: 051

REACTIONS (2)
  - Completed suicide [Fatal]
  - Toxicity to various agents [Fatal]
